FAERS Safety Report 21838322 (Version 3)
Quarter: 2023Q1

REPORT INFORMATION
  Report Type: Spontaneous
  Country: FR (occurrence: FR)
  Receive Date: 20230109
  Receipt Date: 20230218
  Transmission Date: 20230418
  Serious: Yes (Death, Life-Threatening, Other)
  Sender: FDA-Public Use
  Company Number: FR-ABBVIE-4260714

PATIENT
  Age: 29 Year
  Sex: Male

DRUGS (10)
  1. TESTOSTERONE [Suspect]
     Active Substance: TESTOSTERONE
     Indication: Product used for unknown indication
     Route: 065
  2. TESTOSTERONE [Suspect]
     Active Substance: TESTOSTERONE
     Indication: Product used for unknown indication
     Route: 065
  3. DROMOSTANOLONE PROPIONATE [Suspect]
     Active Substance: DROMOSTANOLONE PROPIONATE
     Indication: Product used for unknown indication
     Route: 065
  4. OXANDROLONE [Suspect]
     Active Substance: OXANDROLONE
     Indication: Product used for unknown indication
     Route: 065
  5. DROMOSTANOLONE [Suspect]
     Active Substance: DROMOSTANOLONE
     Indication: Product used for unknown indication
     Route: 065
  6. TESTOSTERONE PROPIONATE [Suspect]
     Active Substance: TESTOSTERONE PROPIONATE
     Indication: Product used for unknown indication
     Route: 065
  7. STANOZOLOL [Suspect]
     Active Substance: STANOZOLOL
     Indication: Product used for unknown indication
     Route: 065
  8. NANDROLONE DECANOATE [Suspect]
     Active Substance: NANDROLONE DECANOATE
     Indication: Product used for unknown indication
     Route: 065
  9. TESTOSTERONE ISOCAPROATE\TESTOSTERONE PHENYLPROPIONATE\TESTOSTERONE PR [Suspect]
     Active Substance: TESTOSTERONE ISOCAPROATE\TESTOSTERONE PHENYLPROPIONATE\TESTOSTERONE PROPIONATE
     Indication: Product used for unknown indication
     Dosage: DAILY DOSE 250
     Route: 065
  10. TESTOSTERONE DECANOATE [Suspect]
     Active Substance: TESTOSTERONE DECANOATE
     Indication: Product used for unknown indication
     Route: 065

REACTIONS (6)
  - Toxicity to various agents [Unknown]
  - Drug abuse [Unknown]
  - Sudden cardiac death [Fatal]
  - Asphyxia [Fatal]
  - Visceral congestion [Fatal]
  - Pulmonary oedema [Fatal]
